FAERS Safety Report 9474865 (Version 1)
Quarter: 2013Q3

REPORT INFORMATION
  Report Type: Spontaneous
  Country: IT (occurrence: IT)
  Receive Date: 20130823
  Receipt Date: 20130823
  Transmission Date: 20140515
  Serious: Yes (Other)
  Sender: FDA-Public Use
  Company Number: IT-ACTAVIS-2013-15303

PATIENT
  Age: 32 Year
  Sex: Female

DRUGS (1)
  1. ALPRAZOLAM (UNKNOWN) [Suspect]
     Indication: PRODUCT USED FOR UNKNOWN INDICATION
     Dosage: 50 DF, SINGLE
     Route: 048
     Dates: start: 20120305, end: 20130305

REACTIONS (4)
  - Depression [Recovering/Resolving]
  - Sopor [Recovering/Resolving]
  - Somnolence [Recovering/Resolving]
  - Overdose [Recovering/Resolving]
